FAERS Safety Report 17469899 (Version 2)
Quarter: 2020Q2

REPORT INFORMATION
  Report Type: Spontaneous
  Country: US (occurrence: US)
  Receive Date: 20200227
  Receipt Date: 20200512
  Transmission Date: 20200713
  Serious: Yes (Disabling, Other)
  Sender: FDA-Public Use
  Company Number: US-REGENERON PHARMACEUTICALS, INC.-2020-17870

PATIENT

DRUGS (4)
  1. EYLEA [Suspect]
     Active Substance: AFLIBERCEPT
     Dosage: 2 MG, Q6W, RIGHT EYE
     Route: 031
     Dates: start: 20200131, end: 20200131
  2. EYLEA [Suspect]
     Active Substance: AFLIBERCEPT
     Dosage: 2 MG, Q6W, RIGHT EYE
     Route: 031
     Dates: start: 20200424, end: 20200424
  3. EYLEA [Suspect]
     Active Substance: AFLIBERCEPT
     Dosage: 2 MG, Q6W, LEFT EYE
     Route: 031
     Dates: start: 20200424, end: 20200424
  4. EYLEA [Suspect]
     Active Substance: AFLIBERCEPT
     Indication: NEOVASCULAR AGE-RELATED MACULAR DEGENERATION
     Dosage: 2 MG, UNK
     Route: 031
     Dates: start: 20160930

REACTIONS (9)
  - Iritis [Not Recovered/Not Resolved]
  - Vision blurred [Not Recovered/Not Resolved]
  - Wrong technique in product usage process [Unknown]
  - Blindness unilateral [Unknown]
  - Keratic precipitates [Unknown]
  - Anterior chamber flare [Not Recovered/Not Resolved]
  - Eye inflammation [Unknown]
  - Visual acuity reduced [Not Recovered/Not Resolved]
  - Anterior chamber cell [Not Recovered/Not Resolved]

NARRATIVE: CASE EVENT DATE: 20200131
